FAERS Safety Report 13488938 (Version 1)
Quarter: 2017Q2

REPORT INFORMATION
  Report Type: Spontaneous
  Country: FR (occurrence: FR)
  Receive Date: 20170426
  Receipt Date: 20170426
  Transmission Date: 20170830
  Serious: Yes (Hospitalization, Congenital Anomaly, Other)
  Sender: FDA-Public Use
  Company Number: FR-ABBVIE-17P-056-1954005-00

PATIENT
  Sex: Female

DRUGS (2)
  1. TERCIAN [Suspect]
     Active Substance: CYAMEMAZINE
     Indication: MATERNAL EXPOSURE TIMING UNSPECIFIED
     Route: 064
  2. DEPAKOTE [Suspect]
     Active Substance: DIVALPROEX SODIUM
     Indication: MATERNAL EXPOSURE TIMING UNSPECIFIED
     Route: 064

REACTIONS (24)
  - Respiratory distress [Unknown]
  - Congenital pulmonary hypertension [Unknown]
  - Patent ductus arteriosus [Unknown]
  - Atrial septal defect [Unknown]
  - Skull malformation [Unknown]
  - Hypoglycaemia [Recovered/Resolved]
  - Foetal exposure during pregnancy [Unknown]
  - Poor sucking reflex [Unknown]
  - Cyanosis [Unknown]
  - Prominent epicanthal folds [Unknown]
  - Oxygen therapy [Recovered/Resolved]
  - Hypertrophic cardiomyopathy [Unknown]
  - Dysmorphism [Not Recovered/Not Resolved]
  - Foetal macrosomia [Unknown]
  - Right ventricular dilatation [Unknown]
  - Gastrooesophageal reflux disease [Unknown]
  - Microstomia [Not Recovered/Not Resolved]
  - Hypotonia [Recovering/Resolving]
  - Premature baby [Unknown]
  - Oesophagitis [Unknown]
  - Congenital facial nerve hypoplasia [Unknown]
  - Malaise [Unknown]
  - Polyhydramnios [Recovered/Resolved]
  - Cardiac murmur [Unknown]

NARRATIVE: CASE EVENT DATE: 20150414
